FAERS Safety Report 10265291 (Version 1)
Quarter: 2014Q2

REPORT INFORMATION
  Report Type: Spontaneous
  Country: BG (occurrence: BG)
  Receive Date: 20140627
  Receipt Date: 20140627
  Transmission Date: 20141212
  Serious: Yes (Other)
  Sender: FDA-Public Use
  Company Number: BG-TAKEDA-2014TUS004722

PATIENT
  Age: 80 Year
  Sex: Female

DRUGS (1)
  1. ADENURIC [Suspect]
     Indication: HYPERURICAEMIA
     Dosage: 80 MG, QD
     Route: 065
     Dates: start: 201401, end: 201402

REACTIONS (1)
  - Oliguria [Recovered/Resolved]
